FAERS Safety Report 17483369 (Version 4)
Quarter: 2020Q2

REPORT INFORMATION
  Report Type: Spontaneous
  Country: US (occurrence: US)
  Receive Date: 20200302
  Receipt Date: 20200421
  Transmission Date: 20200713
  Serious: Yes (Hospitalization)
  Sender: FDA-Public Use
  Company Number: US-VERTEX PHARMACEUTICALS-2020-003903

PATIENT
  Age: 3 Year
  Sex: Female
  Weight: 13 kg

DRUGS (8)
  1. ORKAMBI [Suspect]
     Active Substance: IVACAFTOR\LUMACAFTOR
     Indication: CYSTIC FIBROSIS
     Dosage: 1 PACKET(100/125 MG GRANULES), BID
     Route: 048
     Dates: start: 201908
  2. ACETAMINOPHEN. [Concomitant]
     Active Substance: ACETAMINOPHEN
  3. IBUPROFEN. [Concomitant]
     Active Substance: IBUPROFEN
  4. VITAMIN D3 [Concomitant]
     Active Substance: CHOLECALCIFEROL
  5. PROVENTIL [Concomitant]
     Active Substance: ALBUTEROL
  6. ONDANSETRON [Concomitant]
     Active Substance: ONDANSETRON
  7. PHYTONADIONE. [Concomitant]
     Active Substance: PHYTONADIONE
  8. CREON [Concomitant]
     Active Substance: PANCRELIPASE AMYLASE\PANCRELIPASE LIPASE\PANCRELIPASE PROTEASE

REACTIONS (6)
  - Respiratory distress [Unknown]
  - Sinusitis bacterial [Unknown]
  - Nasal discharge discolouration [Not Recovered/Not Resolved]
  - Cough [Unknown]
  - Respiratory tract congestion [Not Recovered/Not Resolved]
  - Dyspnoea exertional [Unknown]

NARRATIVE: CASE EVENT DATE: 20200218
